FAERS Safety Report 8342821-9 (Version None)
Quarter: 2012Q1

REPORT INFORMATION
  Report Type: 
  Country: None (occurrence: None)
  Receive Date: 20120330
  Receipt Date: 20010815
  Transmission Date: 20120608
  Serious: Yes (Hospitalization)
  Sender: FDA-Public Use
  Company Number: PHEH2001US06992

PATIENT
  Age: 79 Year
  Sex: Male

DRUGS (8)
  1. VITAMIN E [Concomitant]
  2. FOLIC ACID [Concomitant]
  3. EXELON [Suspect]
     Indication: DEMENTIA ALZHEIMER'S TYPE
     Dosage: 6 MG, BID
     Dates: start: 20001201
  4. INDAPAMIDE [Concomitant]
  5. ASPIRIN [Concomitant]
  6. MELLARIL [Concomitant]
  7. VITAMIN B12 [Concomitant]
  8. VITAMIN B6 [Concomitant]

REACTIONS (1)
  - RECTAL HAEMORRHAGE [None]
